FAERS Safety Report 5842356-9 (Version None)
Quarter: 2008Q3

REPORT INFORMATION
  Report Type: 
  Country: None (occurrence: None)
  Receive Date: 20080731
  Receipt Date: 20080619
  Transmission Date: 20090109
  Serious: No
  Sender: FDA-Public Use
  Company Number: US200806004758

PATIENT
  Age: 72 Year
  Sex: Female

DRUGS (10)
  1. BYETTA [Suspect]
     Indication: INSULIN-REQUIRING TYPE 2 DIABETES MELLITUS
     Dosage: 5 UG, 2/D, SUBCUTANEOUS : 10 UG, 2/D, SUBCUTANEOUS
     Route: 058
     Dates: start: 20060501, end: 20060601
  2. BYETTA [Suspect]
     Indication: INSULIN-REQUIRING TYPE 2 DIABETES MELLITUS
     Dosage: 5 UG, 2/D, SUBCUTANEOUS : 10 UG, 2/D, SUBCUTANEOUS
     Route: 058
     Dates: start: 20060601
  3. LANTUS [Concomitant]
  4. METFORMIN HCL [Concomitant]
  5. GLIMEPIRIDE [Concomitant]
  6. SYNTHROID [Concomitant]
  7. VYTORIN [Concomitant]
  8. BENAZEPRIL HCL [Concomitant]
  9. FUROSEMIDE (FUROSEMIDE) [Concomitant]
  10. EXENATIDE [Concomitant]

REACTIONS (2)
  - DRY SKIN [None]
  - HAIR TEXTURE ABNORMAL [None]
